FAERS Safety Report 7056665-1 (Version None)
Quarter: 2010Q4

REPORT INFORMATION
  Report Type: 
  Country: None (occurrence: None)
  Receive Date: 20101021
  Receipt Date: 20101007
  Transmission Date: 20110411
  Serious: Yes (Other)
  Sender: FDA-Public Use
  Company Number: US-ELI_LILLY_AND_COMPANY-US201010001846

PATIENT
  Sex: Female

DRUGS (1)
  1. FORTEO [Suspect]
     Indication: SPINAL FRACTURE
     Dosage: 20 UG, DAILY (1/D)

REACTIONS (2)
  - HAEMORRHAGE [None]
  - INJECTION SITE REACTION [None]
